FAERS Safety Report 23431413 (Version 1)
Quarter: 2024Q1

REPORT INFORMATION
  Report Type: Spontaneous
  Country: US (occurrence: US)
  Receive Date: 20240123
  Receipt Date: 20240123
  Transmission Date: 20240410
  Serious: Yes (Hospitalization, Other)
  Sender: FDA-Public Use
  Company Number: US-HIKMA PHARMACEUTICALS USA INC.-US-H14001-24-00369

PATIENT
  Age: 14 Year
  Sex: Female
  Weight: 91.8 kg

DRUGS (7)
  1. MERCAPTOPURINE [Suspect]
     Active Substance: MERCAPTOPURINE
     Indication: Acute lymphocytic leukaemia
     Dosage: 50 MG 4 DAYS/WEEK AND 25 MG 3 DAYS/WEEK
     Route: 048
     Dates: start: 20231114, end: 20231126
  2. MERCAPTOPURINE [Suspect]
     Active Substance: MERCAPTOPURINE
     Dosage: 50 MG 4 DAYS/WEEK AND 25 MG 3 DAYS/WEEK
     Route: 048
     Dates: start: 20231205
  3. METHOTREXATE [Suspect]
     Active Substance: METHOTREXATE
     Indication: Acute lymphocytic leukaemia
     Dosage: 31.25 MILLIGRAM, WEEKLY
     Route: 048
     Dates: start: 20231121, end: 20231127
  4. METHOTREXATE [Suspect]
     Active Substance: METHOTREXATE
     Dosage: 31.25 MILLIGRAM, WEEKLY
     Route: 048
     Dates: start: 20231205
  5. METHOTREXATE [Suspect]
     Active Substance: METHOTREXATE
     Indication: Acute lymphocytic leukaemia
     Dosage: 15 MILLIGRAM
     Route: 037
     Dates: start: 20231114, end: 20231114
  6. RUXOLITINIB [Suspect]
     Active Substance: RUXOLITINIB
     Indication: Acute lymphocytic leukaemia
     Dosage: 100 MILLIGRAM, BID
     Route: 048
     Dates: start: 20231114, end: 20231127
  7. VINCRISTINE [Suspect]
     Active Substance: VINCRISTINE
     Indication: Acute lymphocytic leukaemia
     Dosage: 2 MILLIGRAM
     Route: 042
     Dates: start: 20231114, end: 20231114

REACTIONS (9)
  - Febrile neutropenia [Recovered/Resolved]
  - Rhinorrhoea [Unknown]
  - Nasal congestion [Unknown]
  - Cough [Unknown]
  - Pyrexia [Unknown]
  - Headache [Unknown]
  - Anaemia [Unknown]
  - Rhinovirus infection [Unknown]
  - Enterovirus infection [Unknown]

NARRATIVE: CASE EVENT DATE: 20231127
